FAERS Safety Report 8621811-2 (Version None)
Quarter: 2012Q3

REPORT INFORMATION
  Report Type: 
  Country: None (occurrence: None)
  Receive Date: 20120821
  Receipt Date: 20120821
  Transmission Date: 20120928
  Serious: Yes (Other)
  Sender: FDA-Public Use
  Company Number: None

PATIENT

DRUGS (1)
  1. SAVELLA [Suspect]
     Indication: FIBROMYALGIA
     Dosage: 5 TABS - 12.5 MG 2XS DAILY PO; 8 25 MG 2XS DAILY PO
     Route: 048
     Dates: start: 20120813, end: 20120816

REACTIONS (6)
  - HEADACHE [None]
  - DECREASED APPETITE [None]
  - FALL [None]
  - FLUSHING [None]
  - ASTHENIA [None]
  - LYMPHOEDEMA [None]
